FAERS Safety Report 12767176 (Version 6)
Quarter: 2021Q1

REPORT INFORMATION
  Report Type: Spontaneous
  Country: JP (occurrence: JP)
  Receive Date: 20160921
  Receipt Date: 20210121
  Transmission Date: 20210419
  Serious: Yes (Hospitalization, Other)
  Sender: FDA-Public Use
  Company Number: JP-JNJFOC-20160918287

PATIENT
  Age: 28 Year
  Sex: Female

DRUGS (3)
  1. REMICADE [Suspect]
     Active Substance: INFLIXIMAB
     Indication: PUSTULAR PSORIASIS
     Dosage: AT THE AGE OF 25
     Route: 042
     Dates: start: 20120614
  2. REMICADE [Suspect]
     Active Substance: INFLIXIMAB
     Dosage: 21ST DOSE
     Route: 042
     Dates: start: 20150518, end: 20150518
  3. REMICADE [Suspect]
     Active Substance: INFLIXIMAB
     Dosage: 22ND DOSE
     Route: 042

REACTIONS (3)
  - Upper respiratory tract infection [Unknown]
  - IgA nephropathy [Recovering/Resolving]
  - Exposure during pregnancy [Recovered/Resolved]

NARRATIVE: CASE EVENT DATE: 201506
